FAERS Safety Report 4461986-2 (Version None)
Quarter: 2004Q3

REPORT INFORMATION
  Report Type: 
  Country: None (occurrence: None)
  Receive Date: 20040923
  Receipt Date: 20040901
  Transmission Date: 20050211
  Serious: Yes (Hospitalization)
  Sender: FDA-Public Use
  Company Number: S04-PRT-03951-01

PATIENT
  Age: 71 Year
  Sex: Male

DRUGS (7)
  1. EBIXA (MEMANTINE) [Suspect]
     Indication: COGNITIVE DISORDER
     Dosage: 10 MG BID PO
     Route: 048
     Dates: start: 20031101, end: 20031101
  2. PASSIFLORA (PASSIFLORA EXTRACT) [Concomitant]
  3. PAULINIA CUPANA (PAULINA CUPANA) [Concomitant]
  4. SALVIA [Concomitant]
  5. VALERIANA OFFICIALIS (VALERIANA OFFICINALS) [Concomitant]
  6. CRAT (CRATAEGUS LAEVIGATA) [Concomitant]
  7. ZOLPIDEM TARTRATE [Concomitant]

REACTIONS (3)
  - DISORIENTATION [None]
  - DIZZINESS [None]
  - MALAISE [None]
